FAERS Safety Report 5667754-8 (Version None)
Quarter: 2008Q1

REPORT INFORMATION
  Report Type: 
  Country: None (occurrence: None)
  Receive Date: 20080315
  Receipt Date: 20080204
  Transmission Date: 20080703
  Serious: No
  Sender: FDA-Public Use
  Company Number: US-ABBOTT-08P-163-0437046-00

PATIENT
  Sex: Female
  Weight: 47.216 kg

DRUGS (8)
  1. HUMIRA [Suspect]
     Indication: RHEUMATOID ARTHRITIS
     Route: 058
     Dates: start: 20070401, end: 20080131
  2. HUMIRA [Suspect]
     Route: 058
     Dates: start: 20080207
  3. LEFLUNOMIDE [Suspect]
     Indication: DRUG USE FOR UNKNOWN INDICATION
     Route: 048
     Dates: end: 20071001
  4. WHELCHOL [Concomitant]
     Indication: BLOOD CHOLESTEROL INCREASED
     Route: 048
  5. RALOXIFENE HYDROCHLORIDE [Concomitant]
     Indication: OSTEOPOROSIS
     Route: 048
  6. RABEPRAZOLE SODIUM [Concomitant]
     Indication: GASTRIC DISORDER
     Route: 048
  7. FINASTERIDE [Concomitant]
     Indication: ALOPECIA
     Route: 048
  8. SPIRONOLACTONE [Concomitant]
     Indication: ALOPECIA
     Route: 048

REACTIONS (8)
  - ARTHRALGIA [None]
  - INJECTION SITE IRRITATION [None]
  - JOINT SWELLING [None]
  - LIVER FUNCTION TEST ABNORMAL [None]
  - NASOPHARYNGITIS [None]
  - PHARYNGOLARYNGEAL PAIN [None]
  - RESPIRATORY TRACT CONGESTION [None]
  - RHEUMATOID ARTHRITIS [None]
